FAERS Safety Report 4548167-9 (Version None)
Quarter: 2005Q1

REPORT INFORMATION
  Report Type: 
  Country: None (occurrence: None)
  Receive Date: 20041227
  Receipt Date: 20040928
  Transmission Date: 20050727
  Serious: No
  Sender: FDA-Public Use
  Company Number: 04P-163-0275135-00

PATIENT
  Age: 85 Year
  Sex: Female
  Weight: 62.1428 kg

DRUGS (7)
  1. HUMIRA [Suspect]
     Indication: RHEUMATOID ARTHRITIS
     Dosage: 40 MG, 1 IN 2 WK, SUBCUTANEOUS
     Route: 058
     Dates: start: 20040601
  2. CELECOXIB [Concomitant]
  3. AMLODIPINE BESYLATE [Concomitant]
  4. ESTROGENS CONJUGATED [Concomitant]
  5. HYDROXYCHLOROQUINE SULFATE [Concomitant]
  6. METHOTREXATE [Concomitant]
  7. TOLTERODINE TARTRATE [Concomitant]

REACTIONS (1)
  - STRESS FRACTURE [None]
